FAERS Safety Report 20953261 (Version 1)
Quarter: 2022Q2

REPORT INFORMATION
  Report Type: Report from Study
  Country: US (occurrence: US)
  Receive Date: 20220613
  Receipt Date: 20220613
  Transmission Date: 20220721
  Serious: No
  Sender: FDA-Public Use
  Company Number: US-NOVARTISTESTPH-NVSC2022US134766

PATIENT
  Sex: Female

DRUGS (1)
  1. TREPROSTINIL [Suspect]
     Active Substance: TREPROSTINIL
     Indication: Pulmonary arterial hypertension
     Dosage: 66 NG/KG/MIN
     Route: 042
     Dates: start: 202110

REACTIONS (5)
  - Diarrhoea [Unknown]
  - Headache [Unknown]
  - Pain in extremity [Unknown]
  - Nausea [Unknown]
  - Pain in jaw [Unknown]
